FAERS Safety Report 15331970 (Version 1)
Quarter: 2018Q3

REPORT INFORMATION
  Report Type: Spontaneous
  Country: FR (occurrence: FR)
  Receive Date: 20180829
  Receipt Date: 20180829
  Transmission Date: 20181010
  Serious: Yes (Hospitalization)
  Sender: FDA-Public Use
  Company Number: PHHY2018FR083790

PATIENT
  Age: 71 Year
  Sex: Male
  Weight: 100 kg

DRUGS (6)
  1. FUROSEMIDE ARROW [Suspect]
     Active Substance: FUROSEMIDE
     Indication: CARDIAC FAILURE
     Dosage: 60 MG, QD
     Route: 048
     Dates: start: 201401
  2. DIGOXINE [Concomitant]
     Active Substance: DIGOXIN
     Indication: ARRHYTHMIA
     Dosage: 1.25 MG, QW
     Route: 048
  3. ENTRESTO [Suspect]
     Active Substance: SACUBITRIL\VALSARTAN
     Indication: CARDIAC FAILURE
     Dosage: 2 DF, QD
     Route: 046
     Dates: start: 20160325
  4. SPIRONOLACTONE ALTIZIDE ARROW [Suspect]
     Active Substance: ALTHIAZIDE\SPIRONOLACTONE
     Indication: CARDIAC FAILURE
     Dosage: 25 MG, QD
     Route: 048
  5. MINISINTROM [Concomitant]
     Active Substance: ACENOCOUMAROL
     Indication: ARRHYTHMIA
     Dosage: 1 MG, QD
     Route: 048
  6. BISOCE [Concomitant]
     Active Substance: BISOPROLOL
     Indication: CARDIAC FAILURE
     Dosage: 10 MG, QD
     Route: 048
     Dates: start: 201403

REACTIONS (1)
  - Gout [Not Recovered/Not Resolved]

NARRATIVE: CASE EVENT DATE: 2016
